FAERS Safety Report 5218988-8 (Version None)
Quarter: 2007Q1

REPORT INFORMATION
  Report Type: 
  Country: None (occurrence: None)
  Receive Date: 20070125
  Receipt Date: 20070113
  Transmission Date: 20070707
  Serious: Yes (Other)
  Sender: FDA-Public Use
  Company Number: US-ROCHE-476344

PATIENT
  Age: 38 Year
  Sex: Female
  Weight: 63 kg

DRUGS (7)
  1. DACLIZUMAB [Suspect]
     Indication: MULTIPLE SCLEROSIS
     Route: 058
     Dates: start: 20050922, end: 20051229
  2. AMBIEN [Concomitant]
     Dates: start: 20050406
  3. IBUPROFEN [Concomitant]
     Dates: start: 20060215
  4. LIDOCAINE [Concomitant]
     Route: 065
     Dates: start: 20060302
  5. INTERFERON BETA-1A [Concomitant]
     Dates: start: 20060312
  6. LYRICA [Concomitant]
     Dates: start: 20060705
  7. 1 CONCOMITANT DRUG [Concomitant]
     Dosage: DRUG NAME REPORTED AS ZOLDIPEM.

REACTIONS (1)
  - NUCLEAR MAGNETIC RESONANCE IMAGING ABNORMAL [None]
